FAERS Safety Report 8492582-8 (Version None)
Quarter: 2012Q3

REPORT INFORMATION
  Report Type: 
  Country: None (occurrence: None)
  Receive Date: 20120706
  Receipt Date: 20120702
  Transmission Date: 20120928
  Serious: Yes (Death, Hospitalization, Other)
  Sender: FDA-Public Use
  Company Number: DE-GENZYME-CAMP-1001408

PATIENT
  Sex: Female
  Weight: 70 kg

DRUGS (55)
  1. CAMPATH [Suspect]
     Dosage: 30 MG, BID
     Route: 058
     Dates: start: 20090723
  2. CYCLOPHOSPHAMIDE [Suspect]
     Dosage: 1200 MG, ONCE
     Route: 042
     Dates: start: 20090723
  3. CYCLOPHOSPHAMIDE [Suspect]
     Dosage: 1200 MG, ONCE
     Route: 042
     Dates: start: 20090820
  4. DOXORUBICIN HCL [Suspect]
     Dosage: 80 MG, ONCE
     Route: 042
     Dates: start: 20090707
  5. VINCRISTINE [Suspect]
     Dosage: 2 MG, ONCE
     Route: 042
     Dates: start: 20090623
  6. PREDNISONE [Suspect]
     Dosage: 100 MG, QD FOR 5 DAYS
     Route: 048
     Dates: start: 20090623
  7. FILGRASTIM [Suspect]
     Dosage: 3000 IU, UNK
     Route: 058
     Dates: start: 20090726, end: 20090827
  8. ENOXAPARIN SODIUM [Concomitant]
     Indication: DEEP VEIN THROMBOSIS
     Dosage: 4 ML, QD
     Route: 058
     Dates: start: 20090401, end: 20100415
  9. ENOXAPARIN SODIUM [Concomitant]
     Dosage: 70 MG, BID
     Route: 065
  10. GANCICLOVIR [Concomitant]
     Indication: PRODUCT USED FOR UNKNOWN INDICATION
     Dosage: 300 MG, QD FOR 2 DAYS
     Route: 065
     Dates: start: 20090810, end: 20090811
  11. METOPROLOL TARTRATE [Concomitant]
     Indication: HYPERTENSION
     Dosage: UNK
     Route: 065
  12. CAMPATH [Suspect]
     Dosage: 20 MG, QD
     Route: 058
     Dates: start: 20090707
  13. VINCRISTINE [Suspect]
     Indication: PERIPHERAL T-CELL LYMPHOMA UNSPECIFIED
     Dosage: 1 MG, ONCE
     Route: 042
     Dates: start: 20090615
  14. VINCRISTINE [Suspect]
     Dosage: 2 MG, ONCE
     Route: 042
     Dates: start: 20090820
  15. PREDNISONE [Suspect]
     Dosage: 100 MG, QD FOR 5 DAYS
     Route: 048
     Dates: start: 20090911
  16. TRIMETHOPRIM + SULFAMETHOXAZOLE [Concomitant]
     Indication: ANTIFUNGAL PROPHYLAXIS
     Dosage: 960 MG, BID
     Route: 048
     Dates: start: 20090701
  17. DEXAMETHASONE [Concomitant]
     Indication: PRODUCT USED FOR UNKNOWN INDICATION
     Dosage: 4 MG, BID
     Route: 065
  18. CAMPATH [Suspect]
     Dosage: 30 MG, QD
     Route: 058
     Dates: start: 20090806, end: 20090806
  19. CYCLOPHOSPHAMIDE [Suspect]
     Dosage: 1200 MG, ONCE
     Route: 042
     Dates: start: 20090721
  20. DOXORUBICIN HCL [Suspect]
     Indication: PERIPHERAL T-CELL LYMPHOMA UNSPECIFIED
     Dosage: 80 MG, ONCE
     Route: 042
     Dates: start: 20090623
  21. PREDNISONE [Suspect]
     Dosage: 100 MG, QD FOR 5 DAYS
     Route: 048
     Dates: start: 20090707
  22. FILGRASTIM [Suspect]
     Dosage: UNK ON DAYS 4 THROUGH 13 OF COURSE 5
     Route: 058
     Dates: start: 20090820
  23. DOXORUBICIN HCL [Suspect]
     Dosage: 80 MG, ONCE
     Route: 042
     Dates: start: 20090721
  24. PREDNISONE [Suspect]
     Indication: PERIPHERAL T-CELL LYMPHOMA UNSPECIFIED
     Dosage: 100 MG, QD FOR 5 DAYS
     Route: 048
     Dates: start: 20090615
  25. PREDNISONE [Suspect]
     Dosage: 100 MG, QD FOR 5 DAYS
     Route: 048
     Dates: start: 20090806, end: 20090810
  26. FILGRASTIM [Suspect]
     Dosage: UNK ON DAYS 4 THROUGH 12 OF COURSE 6
     Route: 058
     Dates: start: 20090908
  27. ANTIBIOTICS [Concomitant]
     Indication: ANTIVIRAL PROPHYLAXIS
     Dosage: UNK
  28. TORSEMIDE [Concomitant]
     Indication: PRODUCT USED FOR UNKNOWN INDICATION
     Dosage: 10 MG, QD
     Route: 065
  29. FLUTICASONE PROPIONATE W [Concomitant]
     Indication: CHRONIC OBSTRUCTIVE PULMONARY DISEASE
     Dosage: UNK
     Route: 065
  30. CAMPATH [Suspect]
     Dosage: 30 MG, QD
     Route: 058
     Dates: start: 20090911, end: 20091022
  31. CYCLOPHOSPHAMIDE [Suspect]
     Indication: PERIPHERAL T-CELL LYMPHOMA UNSPECIFIED
     Dosage: 1250 MG, ONCE
     Route: 042
     Dates: start: 20090623
  32. CYCLOPHOSPHAMIDE [Suspect]
     Dosage: 1200 MG, ONCE
     Route: 042
     Dates: start: 20090908, end: 20090908
  33. DOXORUBICIN HCL [Suspect]
     Dosage: 80 MG, ONCE
     Route: 042
     Dates: start: 20090806, end: 20090820
  34. DOXORUBICIN HCL [Suspect]
     Dosage: 80 MG, ONCE
     Route: 042
     Dates: start: 20090908, end: 20090908
  35. VINCRISTINE [Suspect]
     Dosage: 2 MG, ONCE
     Route: 042
     Dates: start: 20090723
  36. FILGRASTIM [Suspect]
     Indication: PERIPHERAL T-CELL LYMPHOMA UNSPECIFIED
     Dosage: UNK ON DAYS 4, 5, 6 OF COURSE 1
     Route: 058
     Dates: start: 20090623
  37. FILGRASTIM [Suspect]
     Dosage: UNK ON DAYS 4 THROUGH 15 OF COURSE 2
     Route: 058
     Dates: start: 20090707
  38. FONDAPARINUX SODIUM [Concomitant]
     Indication: DEEP VEIN THROMBOSIS
     Dosage: 5 MG, QD
     Route: 058
     Dates: start: 20100505, end: 20100522
  39. PANTOPRAZOLE [Concomitant]
     Indication: PRODUCT USED FOR UNKNOWN INDICATION
     Dosage: 40 MG, QD
     Route: 065
  40. DOXORUBICIN HCL [Suspect]
     Dosage: 80 MG, ONCE
     Route: 042
     Dates: start: 20090723
  41. VINCRISTINE [Suspect]
     Dosage: 2 MG, ONCE
     Route: 042
     Dates: start: 20090707
  42. FILGRASTIM [Suspect]
     Dosage: UNK ON DAYS 4 THROUGH 8 AND DAY 13 OF COURSE 3
     Route: 058
     Dates: start: 20090723
  43. FILGRASTIM [Suspect]
     Dosage: UNK ON DAYS 6 + 7 AND DAYS 9 THROUGH 12 OF COURSE 4
     Route: 058
     Dates: start: 20090806
  44. DOXORUBICIN HCL [Suspect]
     Dosage: 80 MG, ONCE
     Route: 042
     Dates: start: 20090820
  45. VINCRISTINE [Suspect]
     Dosage: 2 MG, ONCE
     Route: 042
     Dates: start: 20090721
  46. VINCRISTINE [Suspect]
  47. PREDNISONE [Suspect]
     Dosage: 100 MG, QD FOR 5 DAYS
     Route: 048
     Dates: start: 20090723
  48. PREDNISONE [Suspect]
     Dosage: 100 MG, UNK
     Route: 048
     Dates: start: 20090908, end: 20090908
  49. GANCICLOVIR [Concomitant]
     Dosage: 300 MG, QD
     Route: 065
     Dates: start: 20090812, end: 20090817
  50. SPIRIVA [Concomitant]
     Indication: CHRONIC OBSTRUCTIVE PULMONARY DISEASE
     Dosage: UNK
     Route: 065
  51. CAMPATH [Suspect]
     Indication: PERIPHERAL T-CELL LYMPHOMA UNSPECIFIED
     Dosage: 10 MG, QD
     Route: 058
     Dates: start: 20090623
  52. CYCLOPHOSPHAMIDE [Suspect]
     Dosage: 1200 MG, ONCE
     Route: 042
     Dates: start: 20090707
  53. CYCLOPHOSPHAMIDE [Suspect]
     Dosage: 1200 MG, ONCE
     Route: 042
     Dates: start: 20090806, end: 20090820
  54. VINCRISTINE [Suspect]
     Dosage: 2 MG, ONCE
     Route: 042
     Dates: start: 20090806, end: 20090820
  55. FILGRASTIM [Suspect]
     Dosage: 30000 IU, QD
     Route: 058
     Dates: start: 20090911, end: 20090919

REACTIONS (16)
  - POST TRANSPLANT LYMPHOPROLIFERATIVE DISORDER [None]
  - KLEBSIELLA INFECTION [None]
  - ABNORMAL BEHAVIOUR [None]
  - DEEP VEIN THROMBOSIS [None]
  - CYTOMEGALOVIRUS INFECTION [None]
  - PULMONARY EMBOLISM [None]
  - FALL [None]
  - TRAUMATIC HAEMATOMA [None]
  - ANAEMIA [None]
  - COGNITIVE DISORDER [None]
  - B-CELL LYMPHOMA [None]
  - URINARY INCONTINENCE [None]
  - PYREXIA [None]
  - PERIPHERAL SENSORY NEUROPATHY [None]
  - NEUTROPHIL TOXIC GRANULATION PRESENT [None]
  - CYTOKINE RELEASE SYNDROME [None]
